FAERS Safety Report 9639121 (Version 2)
Quarter: 2013Q4

REPORT INFORMATION
  Report Type: Spontaneous
  Country: DE (occurrence: None)
  Receive Date: 20131009
  Receipt Date: 20131015
  Transmission Date: 20140711
  Serious: Yes (Death)
  Sender: FDA-Public Use
  Company Number: 2013038245

PATIENT
  Age: 69 Year
  Sex: Female

DRUGS (1)
  1. PRIVIGEN [Suspect]
     Dosage: NI, 20 G TOTAL, DOSAGE RATE: MIN. 100, MAX 100
     Route: 042
     Dates: start: 20110214, end: 20130328

REACTIONS (1)
  - Death [None]
